FAERS Safety Report 5099688-4 (Version None)
Quarter: 2006Q3

REPORT INFORMATION
  Report Type: 
  Country: None (occurrence: None)
  Receive Date: 20060908
  Receipt Date: 20060828
  Transmission Date: 20061208
  Serious: Yes (Other)
  Sender: FDA-Public Use
  Company Number: FI-ROCHE-461068

PATIENT
  Age: 76 Year
  Sex: Female

DRUGS (1)
  1. XELODA [Suspect]
     Indication: COLORECTAL CANCER
     Dosage: TWO WEEK CYCLES FOLLOWED BY ONE WEEKS PAUSE. DOSEAGE REGIMEN ALSO REPORTED AS ^2X4 CAPS^.
     Route: 048
     Dates: start: 20060508

REACTIONS (4)
  - ANXIETY [None]
  - BLOOD BILIRUBIN INCREASED [None]
  - THROMBOPHLEBITIS [None]
  - TREATMENT NONCOMPLIANCE [None]
